FAERS Safety Report 6704989-7 (Version None)
Quarter: 2010Q2

REPORT INFORMATION
  Report Type: 
  Country: None (occurrence: None)
  Receive Date: 20100430
  Receipt Date: 20100423
  Transmission Date: 20101027
  Serious: Yes (Hospitalization, Disabling)
  Sender: FDA-Public Use
  Company Number: A0856090A

PATIENT
  Age: 33 Year
  Sex: Male

DRUGS (3)
  1. LAMICTAL [Suspect]
     Indication: BIPOLAR DISORDER
     Dosage: 100MG TWICE PER DAY
     Route: 048
     Dates: start: 20060101, end: 20100401
  2. MELLARIL [Suspect]
     Indication: DRUG USE FOR UNKNOWN INDICATION
     Route: 065
  3. ZYRTEC [Concomitant]

REACTIONS (4)
  - EYE SWELLING [None]
  - MIDDLE INSOMNIA [None]
  - RASH [None]
  - URTICARIA [None]
